FAERS Safety Report 7064715-1 (Version None)
Quarter: 2010Q4

REPORT INFORMATION
  Report Type: 
  Country: None (occurrence: None)
  Receive Date: 20101027
  Receipt Date: 19950511
  Transmission Date: 20110411
  Serious: Yes (Death, Other)
  Sender: FDA-Public Use
  Company Number: FR-ROCHE-49139

PATIENT
  Age: 40 Year
  Sex: Male
  Weight: 43 kg

DRUGS (5)
  1. LARIAM [Suspect]
     Route: 048
  2. KETOCONAZOLE [Concomitant]
  3. PENICILLIN [Concomitant]
  4. COTRIM [Concomitant]
  5. RANITIDINE [Concomitant]

REACTIONS (2)
  - DEATH [None]
  - HYPOGLYCAEMIA [None]
